FAERS Safety Report 14679244 (Version 1)
Quarter: 2018Q1

REPORT INFORMATION
  Report Type: Report from Study
  Country: FR (occurrence: FR)
  Receive Date: 20180326
  Receipt Date: 20180326
  Transmission Date: 20180509
  Serious: Yes (Hospitalization)
  Sender: FDA-Public Use
  Company Number: PHHY2018FR051451

PATIENT
  Age: 9 Year
  Sex: Male
  Weight: 27 kg

DRUGS (5)
  1. RISPERDAL [Concomitant]
     Active Substance: RISPERIDONE
     Indication: TUBEROUS SCLEROSIS COMPLEX
     Dosage: 1.25 MG, BID
     Route: 065
     Dates: start: 20100218
  2. VOTUBIA [Suspect]
     Active Substance: EVEROLIMUS
     Indication: TUBEROUS SCLEROSIS COMPLEX
     Dosage: 2.5 MG, QD
     Route: 048
     Dates: start: 20140216
  3. LAMICTAL [Concomitant]
     Active Substance: LAMOTRIGINE
     Indication: TUBEROUS SCLEROSIS COMPLEX
     Dosage: 125 MG, BID
     Route: 065
     Dates: start: 20150320
  4. SABRIL [Concomitant]
     Active Substance: VIGABATRIN
     Indication: TUBEROUS SCLEROSIS COMPLEX
     Dosage: 2.5 G, QD
     Route: 065
     Dates: start: 200804
  5. MELATONINE [Concomitant]
     Active Substance: MELATONIN
     Indication: TUBEROUS SCLEROSIS COMPLEX
     Dosage: 4 MG, BID
     Route: 065
     Dates: start: 20150911

REACTIONS (4)
  - Hypoxia [Unknown]
  - Influenza [Recovered/Resolved]
  - Respiratory tract infection [Recovered/Resolved]
  - Pharyngeal disorder [Unknown]

NARRATIVE: CASE EVENT DATE: 20150315
